FAERS Safety Report 7768168-7 (Version None)
Quarter: 2011Q3

REPORT INFORMATION
  Report Type: 
  Country: None (occurrence: None)
  Receive Date: 20110919
  Receipt Date: 20110902
  Transmission Date: 20111222
  Serious: Yes (Hospitalization, Other)
  Sender: FDA-Public Use
  Company Number: JPI-P-012185

PATIENT
  Age: 78 Year
  Sex: Female
  Weight: 80.2867 kg

DRUGS (5)
  1. LEVOTHYROXINE [Concomitant]
  2. XYREM [Suspect]
     Indication: CATAPLEXY
     Dosage: 7.5 GM (3.75 GM, 2 IN 1 D), ORAL  (TITRATING DOSE), ORAL   9 GM (4.5 GM, 2 IN 1 D), ORAL
     Route: 048
     Dates: start: 20021003
  3. XYREM [Suspect]
     Indication: CATAPLEXY
     Dosage: 7.5 GM (3.75 GM, 2 IN 1 D), ORAL  (TITRATING DOSE), ORAL   9 GM (4.5 GM, 2 IN 1 D), ORAL
     Route: 048
     Dates: start: 20091028
  4. SERTRALINE HYDROCHLORIDE [Concomitant]
  5. CLOMIPRAMINE HCL [Concomitant]

REACTIONS (10)
  - THYROID NEOPLASM [None]
  - URINARY TRACT INFECTION STAPHYLOCOCCAL [None]
  - SEPSIS [None]
  - TREMOR [None]
  - DEMENTIA [None]
  - WEIGHT DECREASED [None]
  - HALLUCINATION [None]
  - INTERVERTEBRAL DISC PROTRUSION [None]
  - ARTHRITIS [None]
  - MUSCULAR WEAKNESS [None]
